FAERS Safety Report 4833499-7 (Version None)
Quarter: 2005Q4

REPORT INFORMATION
  Report Type: 
  Country: None (occurrence: None)
  Receive Date: 20051117
  Receipt Date: 20051108
  Transmission Date: 20060501
  Serious: Yes (Other)
  Sender: FDA-Public Use
  Company Number: 2005154485

PATIENT
  Sex: Female

DRUGS (1)
  1. DEPO-PROVERA [Suspect]
     Indication: CONTRACEPTION
     Dosage: (INJECTION), INTRAMUSCULAR
     Route: 030

REACTIONS (11)
  - BLINDNESS [None]
  - BONE DENSITY DECREASED [None]
  - DISTURBANCE IN ATTENTION [None]
  - GENERAL PHYSICAL HEALTH DETERIORATION [None]
  - MALAISE [None]
  - MENSTRUATION IRREGULAR [None]
  - OVARIAN CYST [None]
  - POLYMENORRHAGIA [None]
  - UPPER LIMB FRACTURE [None]
  - VISUAL ACUITY REDUCED [None]
  - WEIGHT INCREASED [None]
